FAERS Safety Report 6899962 (Version 7)
Quarter: 2012Q4

REPORT INFORMATION
  Report Type: Report from Study
  Country: FR (occurrence: FR)
  Receive Date: 20090203
  Receipt Date: 20121219
  Transmission Date: 20130627
  Serious: Yes (Death, Hospitalization)
  Sender: FDA-Public Use
  Company Number: FR-GILEAD-2009-0019780

PATIENT
  Age: 49 Year
  Sex: Male

DRUGS (24)
  1. EMTRICITABINE/TENOFOVIR DISOPROXIL FUMARATE [Suspect]
     Indication: HIV INFECTION
     Dosage: 1 DF, QD
     Dates: start: 20081123, end: 20090104
  2. EMTRIVA [Suspect]
     Indication: HIV INFECTION
     Dates: start: 20090104, end: 20090123
  3. KALETRA [Suspect]
     Indication: HIV INFECTION
     Route: 048
     Dates: start: 20081223, end: 20090123
  4. KALETRA [Suspect]
     Dates: start: 20090310
  5. FUZEON [Suspect]
     Indication: HIV INFECTION
     Route: 058
     Dates: start: 20081223, end: 20090123
  6. FUZEON [Suspect]
     Dates: start: 20090310
  7. KIVEXA [Suspect]
     Indication: HIV INFECTION
     Dates: start: 20090310
  8. CORTANCYL [Suspect]
     Indication: IMMUNE RECONSTITUTION INFLAMMATORY SYNDROME
     Dates: start: 20090120
  9. CORTANCYL [Suspect]
     Dates: start: 20050326
  10. ZECLAR [Concomitant]
     Indication: MYCOBACTERIUM AVIUM COMPLEX INFECTION
     Dates: start: 20081121
  11. FOLINORAL [Concomitant]
     Indication: ANAEMIA
     Dates: start: 20081121
  12. TRIFLUCAN [Concomitant]
     Indication: FUNGAL INFECTION
     Dates: start: 20090103
  13. ANSATIPINE [Concomitant]
     Indication: MYCOBACTERIUM AVIUM COMPLEX INFECTION
     Dates: start: 20081223
  14. ANSATIPINE [Concomitant]
     Dosage: 300 mg, QD
     Dates: start: 20090216
  15. MYAMBUTOL [Concomitant]
     Indication: MYCOBACTERIUM AVIUM COMPLEX INFECTION
     Dosage: 800 mg, QD
     Dates: start: 20081121
  16. MYAMBUTOL [Concomitant]
     Dosage: 1 DF, UNK
     Dates: start: 20090214
  17. BACTRIM [Concomitant]
     Indication: ANTIFUNGAL PROPHYLAXIS
     Dates: start: 20081121
  18. ROVALCYTE [Concomitant]
     Indication: CYTOMEGALOVIRUS INFECTION
     Dates: start: 20090213
  19. OFLOCET [Concomitant]
     Indication: PRODUCT USED FOR UNKNOWN INDICATION
     Dates: start: 20090214
  20. RIMIFON [Concomitant]
     Indication: MYCOBACTERIUM AVIUM COMPLEX INFECTION
  21. LOXEN [Concomitant]
     Indication: HYPERTENSION
     Dates: start: 20090124
  22. NOVONORM [Concomitant]
     Indication: DIABETES MELLITUS
  23. LODOZ [Concomitant]
     Indication: PRODUCT USED FOR UNKNOWN INDICATION
     Dosage: UNK
     Dates: start: 20090124
  24. AMIKACINE                          /00391001/ [Concomitant]
     Indication: PRODUCT USED FOR UNKNOWN INDICATION
     Dosage: 500 mg, UNK
     Dates: start: 20090204

REACTIONS (15)
  - Cerebral toxoplasmosis [Fatal]
  - Encephalitis cytomegalovirus [Fatal]
  - Septic shock [Fatal]
  - Cholestasis [Recovered/Resolved]
  - Rectal haemorrhage [Not Recovered/Not Resolved]
  - Convulsion [Unknown]
  - Subdural haematoma [Not Recovered/Not Resolved]
  - Disseminated cytomegaloviral infection [Not Recovered/Not Resolved]
  - Abscess [Recovered/Resolved]
  - Large intestine perforation [Recovered/Resolved]
  - Confusional state [Fatal]
  - Pyrexia [Recovered/Resolved]
  - Anaemia [Recovered/Resolved]
  - Renal failure [Recovered/Resolved]
  - Immune reconstitution inflammatory syndrome [Not Recovered/Not Resolved]
